FAERS Safety Report 9817893 (Version 1)
Quarter: 2013Q4

REPORT INFORMATION
  Report Type: Spontaneous
  Country: US (occurrence: None)
  Receive Date: 20131223
  Receipt Date: 20131223
  Transmission Date: 20140711
  Serious: No
  Sender: FDA-Public Use
  Company Number: 219410

PATIENT
  Sex: Female

DRUGS (2)
  1. PICATO (0.05 %) [Suspect]
     Indication: ACTINIC KERATOSIS
     Dosage: TOPICAL
     Route: 061
     Dates: start: 20121029, end: 20121030
  2. LOESTRIL (ANOVLAR) [Concomitant]

REACTIONS (3)
  - Application site burn [None]
  - Application site pruritus [None]
  - Application site vesicles [None]
